FAERS Safety Report 19641830 (Version 2)
Quarter: 2021Q3

REPORT INFORMATION
  Report Type: Spontaneous
  Country: IN (occurrence: IN)
  Receive Date: 20210730
  Receipt Date: 20210806
  Transmission Date: 20211014
  Serious: Yes (Death)
  Sender: FDA-Public Use
  Company Number: IN-PFIZER INC-2019398516

PATIENT
  Age: 62 Year
  Sex: Female
  Weight: 59 kg

DRUGS (8)
  1. PALBACE [Suspect]
     Active Substance: PALBOCICLIB
     Indication: BREAST CANCER METASTATIC
     Dosage: 125 MG, CYCLIC (ONCE DAILY AFTER FOOD FOR 21 DAYS, THEN 7 DAYS GAP)
     Route: 048
     Dates: start: 20190101
  2. SHELCAL [Concomitant]
     Active Substance: CALCIUM CARBONATE\CHOLECALCIFEROL
     Dosage: 1 DF, 1X/DAY
  3. LETROZOL [Concomitant]
     Active Substance: LETROZOLE
     Dosage: 1 DF, 1X/DAY
  4. TRYPTOMER [Concomitant]
     Active Substance: AMITRIPTYLINE
     Dosage: 10 MG, 1X/DAY (AT BED TIME FOR 30 DAYS)
  5. DUPHALAC [Concomitant]
     Active Substance: LACTULOSE
     Dosage: 20 ML, 1X/DAY (30 DAYS (ONCE BEFORE BED))
     Dates: start: 20191113
  6. FESTAL N [Concomitant]
     Dosage: 1 DF, 3X/DAY (1 DF, THREE TIMES DAILY. 8:00 AM, 3:00PM, 11:00 PM)
     Dates: start: 20191209
  7. DUPHALAC [Concomitant]
     Active Substance: LACTULOSE
     Dosage: 20 ML, 1X/DAY (20 ML, X 30 DAYS (ONCE BEFORE BED)
     Dates: start: 20191209
  8. FESTAL N [Concomitant]
     Dosage: 212.50 MG, 3X/DAY (30 DAYS, THREE TIMES DAILY. 8: 00 AM, 3:00PM, 11:00 PM)
     Dates: start: 20191113

REACTIONS (5)
  - Haemoglobin decreased [Not Recovered/Not Resolved]
  - Haematocrit decreased [Recovering/Resolving]
  - Neutrophil count decreased [Not Recovered/Not Resolved]
  - Neoplasm progression [Unknown]
  - COVID-19 [Fatal]

NARRATIVE: CASE EVENT DATE: 20190918
